FAERS Safety Report 21895413 (Version 2)
Quarter: 2023Q1

REPORT INFORMATION
  Report Type: Spontaneous
  Country: US (occurrence: US)
  Receive Date: 20230123
  Receipt Date: 20230224
  Transmission Date: 20230418
  Serious: Yes (Death, Life-Threatening, Hospitalization, Other)
  Sender: FDA-Public Use
  Company Number: US-MLMSERVICE-20221228-4007210-1

PATIENT
  Age: 37 Year
  Sex: Male
  Weight: 41 kg

DRUGS (19)
  1. LIDOCAINE [Suspect]
     Active Substance: LIDOCAINE
     Indication: Dental local anaesthesia
     Dosage: 72 MILLIGRAM (TOTAL)(3.6 ML)
     Route: 004
  2. ARTICAINE [Suspect]
     Active Substance: ARTICAINE
     Indication: Dental local anaesthesia
     Dosage: 72 MILLIGRAM
     Route: 004
  3. ARTICAINE [Suspect]
     Active Substance: ARTICAINE
     Dosage: 144 MILLIGRAM
     Route: 004
  4. EPINEPHRINE [Suspect]
     Active Substance: EPINEPHRINE
     Indication: Dental local anaesthesia
     Dosage: 18 MICROGRAM
     Route: 004
  5. EPINEPHRINE [Suspect]
     Active Substance: EPINEPHRINE
     Indication: Dental local anaesthesia
     Dosage: 36 MICROGRAM
     Route: 004
  6. EPINEPHRINE [Suspect]
     Active Substance: EPINEPHRINE
     Dosage: 18 MICROGRAM
     Route: 004
  7. MIDAZOLAM [Suspect]
     Active Substance: MIDAZOLAM
     Indication: Sedation
     Dosage: 1 MILLIGRAM (TOTAL)(FIRST DOSE)
     Route: 002
  8. MIDAZOLAM [Suspect]
     Active Substance: MIDAZOLAM
     Dosage: 1 MILLIGRAM (TOTAL)(FINAL)
     Route: 042
  9. MIDAZOLAM [Suspect]
     Active Substance: MIDAZOLAM
     Dosage: 1 MILLIGRAM
     Route: 042
  10. PROPOFOL [Suspect]
     Active Substance: PROPOFOL
     Indication: Product used for unknown indication
     Dosage: SMALL DOSES
     Route: 065
  11. PROPOFOL [Suspect]
     Active Substance: PROPOFOL
     Dosage: 80 MILLIGRAM (TOTAL)
     Route: 065
  12. PROPOFOL [Suspect]
     Active Substance: PROPOFOL
     Dosage: 50 MILLIGRAM
     Route: 065
  13. SUCCINYLCHOLINE [Suspect]
     Active Substance: SUCCINYLCHOLINE
     Indication: Product used for unknown indication
     Dosage: 80 MILLIGRAM
     Route: 065
  14. DENTA 5000 PLUS [Concomitant]
     Active Substance: SODIUM FLUORIDE
     Indication: Product used for unknown indication
     Dosage: UNK
     Route: 065
  15. DOCUSATE [Concomitant]
     Active Substance: DOCUSATE
     Indication: Product used for unknown indication
     Dosage: UNK
     Route: 065
  16. OXYGEN [Concomitant]
     Active Substance: OXYGEN
     Indication: Oxygen therapy
     Dosage: 3 LITER (EVERY MIN)
     Route: 045
  17. SALINE [Concomitant]
     Active Substance: SODIUM CHLORIDE
     Indication: Product used for unknown indication
     Dosage: 200 MILLILITER, EVERY HOUR
     Route: 042
  18. SENNA [Concomitant]
     Active Substance: SENNA LEAF\SENNOSIDES\SENNOSIDES A AND B
     Indication: Product used for unknown indication
     Dosage: UNK
     Route: 065
  19. FLUMAZENIL [Concomitant]
     Active Substance: FLUMAZENIL
     Indication: Product used for unknown indication
     Dosage: 0.1 MILLIGRAM (2 DOSES)
     Route: 065

REACTIONS (16)
  - Craniocerebral injury [Fatal]
  - Fall [Fatal]
  - Condition aggravated [Unknown]
  - Pneumothorax [Unknown]
  - Arrhythmia [Unknown]
  - Myotonic dystrophy [Unknown]
  - Electrocardiogram ST segment elevation [Recovered/Resolved]
  - Pneumonitis aspiration [Unknown]
  - Hypoxia [Unknown]
  - Pneumonia [Unknown]
  - Cardiac arrest [Recovered/Resolved]
  - Hypersomnia [Unknown]
  - Hyporesponsive to stimuli [Recovering/Resolving]
  - Drug clearance decreased [Recovering/Resolving]
  - Overdose [Unknown]
  - Toxicity to various agents [Unknown]
